FAERS Safety Report 17254368 (Version 4)
Quarter: 2020Q2

REPORT INFORMATION
  Report Type: Spontaneous
  Country: US (occurrence: US)
  Receive Date: 20200109
  Receipt Date: 20200406
  Transmission Date: 20200713
  Serious: No
  Sender: FDA-Public Use
  Company Number: US-009507513-2001USA002943

PATIENT
  Age: 36 Year
  Sex: Female

DRUGS (1)
  1. NEXPLANON [Suspect]
     Active Substance: ETONOGESTREL
     Indication: CONTRACEPTION
     Dosage: 1 ROD
     Route: 059
     Dates: start: 20200103, end: 20200107

REACTIONS (4)
  - Pain in extremity [Recovering/Resolving]
  - Implant site pain [Not Recovered/Not Resolved]
  - Pain [Recovering/Resolving]
  - Implant site bruising [Recovering/Resolving]

NARRATIVE: CASE EVENT DATE: 202001
